FAERS Safety Report 15959521 (Version 6)
Quarter: 2019Q4

REPORT INFORMATION
  Report Type: Report from Study
  Country: CO (occurrence: CO)
  Receive Date: 20190214
  Receipt Date: 20191202
  Transmission Date: 20200122
  Serious: Yes (Hospitalization, Other)
  Sender: FDA-Public Use
  Company Number: CO-ASTELLAS-2019US004889

PATIENT
  Age: 73 Year
  Sex: Male
  Weight: 64 kg

DRUGS (6)
  1. PREDNISOLONE. [Concomitant]
     Active Substance: PREDNISOLONE
     Indication: PRODUCT USED FOR UNKNOWN INDICATION
     Route: 048
  2. ERYTHROPOIETIN [Concomitant]
     Active Substance: ERYTHROPOIETIN
     Indication: PRODUCT USED FOR UNKNOWN INDICATION
     Dosage: UNK UNK, UNKNOWN FREQ.
     Route: 050
  3. TACROLIMUS. [Suspect]
     Active Substance: TACROLIMUS
     Indication: RENAL TRANSPLANT
     Route: 048
     Dates: start: 20151215, end: 201901
  4. MEROPENEM. [Concomitant]
     Active Substance: MEROPENEM
     Indication: FUNGAL INFECTION
     Route: 042
     Dates: start: 20190314, end: 20190317
  5. TACROLIMUS. [Suspect]
     Active Substance: TACROLIMUS
     Dosage: 2 MG (2 CAPSULES OF THE 1 MG), ONCE DAILY
     Route: 048
  6. MYCOPHENOLATE [Concomitant]
     Active Substance: MYCOPHENOLIC ACID
     Indication: TRANSPLANT
     Route: 048

REACTIONS (13)
  - Inflammation [Recovering/Resolving]
  - Anaemia [Recovered/Resolved]
  - Urinary tract obstruction [Recovered/Resolved]
  - Pain [Recovered/Resolved]
  - Anaemia [Recovering/Resolving]
  - Blood creatinine increased [Recovering/Resolving]
  - Urinary tract infection [Recovering/Resolving]
  - Immunosuppressant drug level increased [Recovered/Resolved]
  - Decreased immune responsiveness [Recovering/Resolving]
  - Bone abscess [Recovering/Resolving]
  - Pyrexia [Recovered/Resolved]
  - Fungal rhinitis [Recovered/Resolved]
  - Diabetic ketoacidosis [Recovered/Resolved]

NARRATIVE: CASE EVENT DATE: 20190104
